FAERS Safety Report 8317674-5 (Version None)
Quarter: 2012Q2

REPORT INFORMATION
  Report Type: 
  Country: None (occurrence: None)
  Receive Date: 20120427
  Receipt Date: 20110429
  Transmission Date: 20120825
  Serious: No
  Sender: FDA-Public Use
  Company Number: US-GLAXOSMITHKLINE-A0926166A

PATIENT
  Sex: Female

DRUGS (4)
  1. SUMATRIPTAN SUCCINATE [Suspect]
     Indication: MIGRAINE
     Route: 065
  2. UNSPECIFIED MEDICATION [Concomitant]
  3. IMITREX [Concomitant]
     Indication: MIGRAINE
     Route: 048
  4. AMERGE [Suspect]
     Indication: MIGRAINE
     Route: 048

REACTIONS (4)
  - NAUSEA [None]
  - DRUG INEFFECTIVE [None]
  - MIGRAINE [None]
  - PAIN [None]
